FAERS Safety Report 5456025-0 (Version None)
Quarter: 2007Q3

REPORT INFORMATION
  Report Type: 
  Country: None (occurrence: None)
  Receive Date: 20070918
  Receipt Date: 20070702
  Transmission Date: 20080115
  Serious: Yes (Other)
  Sender: FDA-Public Use
  Company Number: US-ASTRAZENECA-2006UW23597

PATIENT
  Age: 46 Year
  Sex: Female
  Weight: 90.9 kg

DRUGS (5)
  1. SEROQUEL [Suspect]
     Indication: BIPOLAR DISORDER
     Route: 048
     Dates: start: 19990101
  2. RISPERDAL [Concomitant]
     Dates: start: 19970101, end: 20000101
  3. ZYPREXA [Concomitant]
     Dates: start: 19970101, end: 20000101
  4. LITHIUM [Concomitant]
  5. BURTON [Concomitant]

REACTIONS (5)
  - ABDOMINAL PAIN UPPER [None]
  - DIABETES MELLITUS [None]
  - DIZZINESS [None]
  - PANCREATITIS [None]
  - VOMITING [None]
